FAERS Safety Report 16354765 (Version 1)
Quarter: 2019Q2

REPORT INFORMATION
  Report Type: Spontaneous
  Country: US (occurrence: US)
  Receive Date: 20190524
  Receipt Date: 20190524
  Transmission Date: 20190711
  Serious: No
  Sender: FDA-Public Use
  Company Number: US-AMAG PHARMACEUTICALS, INC.-AMAG201902673

PATIENT
  Age: 26 Year
  Sex: Female
  Weight: 85.9 kg

DRUGS (4)
  1. OMEPRAZOLE. [Concomitant]
     Active Substance: OMEPRAZOLE
     Indication: PRODUCT USED FOR UNKNOWN INDICATION
     Route: 048
     Dates: start: 201903
  2. PRENATAL VITAMINS [Concomitant]
     Active Substance: VITAMINS
     Indication: SUPPLEMENTATION THERAPY
     Route: 048
     Dates: start: 201811
  3. AMITRYPTALINE [Concomitant]
     Active Substance: AMITRIPTYLINE
     Indication: INSOMNIA
     Route: 048
     Dates: start: 201901
  4. MAKENA [Suspect]
     Active Substance: HYDROXYPROGESTERONE CAPROATE
     Indication: PREMATURE DELIVERY
     Route: 058
     Dates: start: 20181220

REACTIONS (1)
  - Product dose omission [Unknown]

NARRATIVE: CASE EVENT DATE: 20190503
